FAERS Safety Report 7061615-8 (Version None)
Quarter: 2010Q4

REPORT INFORMATION
  Report Type: 
  Country: None (occurrence: None)
  Receive Date: 20101026
  Receipt Date: 20100608
  Transmission Date: 20110411
  Serious: No
  Sender: FDA-Public Use
  Company Number: US-ABBOTT-10P-163-0650488-00

PATIENT
  Age: 43 Year
  Sex: Female

DRUGS (4)
  1. LUPRON DEPOT [Suspect]
     Indication: POLYCYSTIC OVARIES
     Dates: start: 20100422
  2. LUPRON DEPOT [Suspect]
     Indication: VAGINAL HAEMORRHAGE
  3. VITAMINS [Concomitant]
     Indication: VITAMIN SUPPLEMENTATION
  4. SUPPLEMENTS [Concomitant]
     Indication: SUPPLEMENTATION THERAPY

REACTIONS (2)
  - HEADACHE [None]
  - HYPERACUSIS [None]
